FAERS Safety Report 19098700 (Version 3)
Quarter: 2021Q3

REPORT INFORMATION
  Report Type: Spontaneous
  Country: HU (occurrence: HU)
  Receive Date: 20210406
  Receipt Date: 20210826
  Transmission Date: 20211014
  Serious: Yes (Hospitalization, Other)
  Sender: FDA-Public Use
  Company Number: NVSC2021HU071285

PATIENT
  Age: 2 Year
  Sex: Male

DRUGS (4)
  1. ZOLGENSMA [Suspect]
     Active Substance: ONASEMNOGENE ABEPARVOVEC-XIOI
     Indication: SPINAL MUSCULAR ATROPHY
     Dosage: UNK UNK, ONCE/SINGLE (6X 8.3 ML +1X5.5 ML)
     Route: 042
     Dates: start: 20210202, end: 20210202
  2. FAMOTIDINE. [Concomitant]
     Active Substance: FAMOTIDINE
     Indication: GASTROINTESTINAL DISORDER PROPHYLAXIS
     Dosage: UNK (2X0.5 MG/KG, DAILY, SUSPENSION)
     Route: 048
     Dates: start: 20210201
  3. NUSINERSEN [Concomitant]
     Active Substance: NUSINERSEN
     Indication: PRODUCT USED FOR UNKNOWN INDICATION
     Dosage: UNK
     Route: 065
     Dates: start: 20190319
  4. ZOLGENSMA [Suspect]
     Active Substance: ONASEMNOGENE ABEPARVOVEC-XIOI
     Dosage: UNK UNK, ONCE/SINGLE (1X5.5 ML)
     Route: 042
     Dates: start: 20210202, end: 20210202

REACTIONS (11)
  - Urobilinogen urine increased [Unknown]
  - Troponin I increased [Recovered/Resolved]
  - Lethargy [Unknown]
  - Blood creatinine decreased [Unknown]
  - Protein urine present [Unknown]
  - Blood lactate dehydrogenase increased [Unknown]
  - Troponin increased [Unknown]
  - Alanine aminotransferase increased [Not Recovered/Not Resolved]
  - Decreased appetite [Unknown]
  - Thrombocytopenia [Recovered/Resolved]
  - Aspartate aminotransferase increased [Not Recovered/Not Resolved]

NARRATIVE: CASE EVENT DATE: 20210209
